FAERS Safety Report 16344152 (Version 1)
Quarter: 2019Q2

REPORT INFORMATION
  Report Type: Spontaneous
  Country: GR (occurrence: GR)
  Receive Date: 20190522
  Receipt Date: 20190522
  Transmission Date: 20190711
  Serious: Yes (Other)
  Sender: FDA-Public Use
  Company Number: GR-CELGENEUS-GRC-20190504760

PATIENT
  Age: 58 Year
  Sex: Male
  Weight: 57.5 kg

DRUGS (5)
  1. INSULIN [Concomitant]
     Active Substance: INSULIN NOS
     Indication: PRODUCT USED FOR UNKNOWN INDICATION
     Dosage: UNKNOWN
     Route: 065
  2. ABRAXANE [Suspect]
     Active Substance: PACLITAXEL
     Indication: PANCREATIC CARCINOMA
     Route: 065
     Dates: start: 20150521, end: 20170322
  3. GEMCITABINE [Concomitant]
     Active Substance: GEMCITABINE\GEMCITABINE HYDROCHLORIDE
     Indication: PANCREATIC CARCINOMA
     Route: 065
     Dates: start: 20150521, end: 20170322
  4. URSODEOXYCHOLIC ACID [Concomitant]
     Active Substance: URSODIOL
     Indication: PRODUCT USED FOR UNKNOWN INDICATION
     Dosage: 1500 MILLIGRAM
     Route: 065
  5. PANCREATIN [Concomitant]
     Active Substance: PANCRELIPASE
     Indication: PRODUCT USED FOR UNKNOWN INDICATION
     Dosage: 7500 IU (INTERNATIONAL UNIT)
     Route: 065

REACTIONS (7)
  - Constipation [Unknown]
  - Urinary tract infection [Recovered/Resolved]
  - Cholangitis [Recovered/Resolved]
  - Therapy partial responder [Unknown]
  - Alopecia [Unknown]
  - Neutropenia [Unknown]
  - Neurotoxicity [Unknown]

NARRATIVE: CASE EVENT DATE: 20161201
